FAERS Safety Report 19834029 (Version 4)
Quarter: 2021Q4

REPORT INFORMATION
  Report Type: Spontaneous
  Country: US (occurrence: US)
  Receive Date: 20210915
  Receipt Date: 20211206
  Transmission Date: 20220304
  Serious: No
  Sender: FDA-Public Use
  Company Number: US-ALKERMES INC.-ALK-2021-004752

PATIENT
  Sex: Female

DRUGS (4)
  1. VIVITROL [Suspect]
     Active Substance: NALTREXONE
     Indication: Alcoholism
     Dosage: 380 MILLIGRAM, QMO
     Route: 030
     Dates: start: 20210924
  2. VIVITROL [Suspect]
     Active Substance: NALTREXONE
     Dosage: 380 MILLIGRAM, QMO
     Route: 030
     Dates: start: 20210824, end: 20210824
  3. VIVITROL [Suspect]
     Active Substance: NALTREXONE
     Dosage: 380 MILLIGRAM, QMO
     Route: 030
     Dates: start: 2013, end: 2013
  4. NALTREXONE [Suspect]
     Active Substance: NALTREXONE
     Indication: Alcoholism
     Dosage: UNK, WEEKLY
     Route: 048
     Dates: end: 2021

REACTIONS (8)
  - Fall [Recovered/Resolved]
  - Injury [Recovered/Resolved]
  - Visual impairment [Recovered/Resolved]
  - Bedridden [Recovered/Resolved]
  - Hypophagia [Recovered/Resolved]
  - Alcoholism [Recovered/Resolved]
  - Malaise [Recovered/Resolved]
  - Headache [Recovered/Resolved]

NARRATIVE: CASE EVENT DATE: 20210101
